FAERS Safety Report 9871177 (Version 2)
Quarter: 2014Q2

REPORT INFORMATION
  Report Type: Report from Study
  Country: US (occurrence: US)
  Receive Date: 20140205
  Receipt Date: 20140415
  Transmission Date: 20141212
  Serious: Yes (Life-Threatening, Hospitalization, Other)
  Sender: FDA-Public Use
  Company Number: US-GILEAD-2014-0093548

PATIENT
  Age: 62 Year
  Sex: Female
  Weight: 54 kg

DRUGS (6)
  1. AZTREONAM LYSINE [Suspect]
     Indication: BRONCHIECTASIS
     Dosage: 75 MG, UNK
     Route: 055
     Dates: start: 20130910, end: 20131001
  2. AZITHROMYCIN [Concomitant]
     Indication: MYCOBACTERIUM AVIUM COMPLEX INFECTION
     Dosage: 500 MG, UNK
     Route: 048
     Dates: start: 20130314
  3. RIFAMPIN [Concomitant]
     Indication: MYCOBACTERIUM AVIUM COMPLEX INFECTION
     Dosage: 600 MG, UNK
     Route: 048
     Dates: start: 20130314
  4. ETHAMBUTOL [Concomitant]
     Indication: MYCOBACTERIUM AVIUM COMPLEX INFECTION
     Dosage: 120 MG, UNK
     Route: 048
     Dates: start: 20140314
  5. ADVAIR [Concomitant]
     Indication: BRONCHIECTASIS
     Dosage: 1 DF, UNK
     Route: 055
     Dates: start: 2012
  6. ALBUTEROL                          /00139501/ [Concomitant]
     Indication: BRONCHIECTASIS
     Dosage: 90 ?G, UNK
     Route: 055
     Dates: start: 2012

REACTIONS (6)
  - Respiratory failure [Recovered/Resolved]
  - Hypoxia [Recovered/Resolved]
  - Alveolitis allergic [Recovered/Resolved]
  - Discomfort [Recovered/Resolved]
  - Cough [Recovered/Resolved]
  - Dyspnoea [Recovered/Resolved]
